FAERS Safety Report 4434231-1 (Version None)
Quarter: 2004Q3

REPORT INFORMATION
  Report Type: 
  Country: None (occurrence: None)
  Receive Date: 20040726
  Receipt Date: 20040309
  Transmission Date: 20050211
  Serious: No
  Sender: FDA-Public Use
  Company Number: USA040157421

PATIENT
  Age: 67 Year
  Sex: Male
  Weight: 58 kg

DRUGS (6)
  1. FORTEO [Suspect]
     Indication: OSTEOPOROSIS
     Dosage: 20 UG/L DAY
     Dates: start: 20030530
  2. TIMOPTIC (TIMLOLOL MALEATE) [Concomitant]
  3. ALPHAGAN [Concomitant]
  4. ZOMETA [Concomitant]
  5. PROSCAR [Concomitant]
  6. XALATAN [Concomitant]

REACTIONS (4)
  - ALOPECIA [None]
  - INJECTION SITE PAIN [None]
  - VISION BLURRED [None]
  - VISUAL ACUITY REDUCED [None]
